FAERS Safety Report 7516574-8 (Version None)
Quarter: 2011Q2

REPORT INFORMATION
  Report Type: 
  Country: None (occurrence: None)
  Receive Date: 20110428
  Receipt Date: 20100420
  Transmission Date: 20111010
  Serious: Yes (Other)
  Sender: FDA-Public Use
  Company Number: THYM-1001359

PATIENT
  Age: 36 Year
  Sex: Female
  Weight: 80.5 kg

DRUGS (4)
  1. THYMOGLOBULIN [Suspect]
     Indication: PROPHYLAXIS AGAINST TRANSPLANT REJECTION
     Dosage: 0.5 MG/KG, ONCE, INTRAVENOUS, 1 MG/KG, ONCE, INTRAVENOUS
     Route: 042
     Dates: start: 20091115, end: 20091115
  2. THYMOGLOBULIN [Suspect]
     Indication: PROPHYLAXIS AGAINST TRANSPLANT REJECTION
     Dosage: 0.5 MG/KG, ONCE, INTRAVENOUS, 1 MG/KG, ONCE, INTRAVENOUS
     Route: 042
     Dates: start: 20091116, end: 20091116
  3. METHYLPREDNISOLONE [Concomitant]
  4. THYMOGLOBULIN [Suspect]
     Indication: PANCREAS ISLET CELL TRANSPLANT

REACTIONS (2)
  - PYREXIA [None]
  - RASH MORBILLIFORM [None]
